FAERS Safety Report 19280588 (Version 1)
Quarter: 2021Q2

REPORT INFORMATION
  Report Type: Spontaneous
  Country: FR (occurrence: FR)
  Receive Date: 20210520
  Receipt Date: 20210520
  Transmission Date: 20210717
  Serious: Yes (Death)
  Sender: FDA-Public Use
  Company Number: FR-ALLERGAN-2119419US

PATIENT
  Sex: Female
  Weight: 57 kg

DRUGS (4)
  1. EUPRESSYL [URAPIDIL] [Suspect]
     Active Substance: URAPIDIL
     Indication: HYPERTENSION
     Dosage: 250 MG, QD
     Route: 042
     Dates: start: 20210407, end: 20210415
  2. CEFTAZIDIME;AVIBACTAM ? BP [Suspect]
     Active Substance: AVIBACTAM SODIUM\CEFTAZIDIME
     Indication: LUNG DISORDER
     Dosage: 4 G, QD
     Dates: start: 20210408, end: 20210411
  3. HEPARIN SODIUM. [Suspect]
     Active Substance: HEPARIN SODIUM
     Indication: PROPHYLAXIS
     Dosage: 25000 IU, QD
     Dates: start: 20210406, end: 20210415
  4. CORTANCYL [Concomitant]
     Active Substance: PREDNISONE
     Dosage: UNK

REACTIONS (2)
  - Mixed liver injury [Fatal]
  - COVID-19 [Fatal]

NARRATIVE: CASE EVENT DATE: 20210410
